FAERS Safety Report 25281556 (Version 1)
Quarter: 2025Q2

REPORT INFORMATION
  Report Type: Report from Study
  Country: US (occurrence: US)
  Receive Date: 20250508
  Receipt Date: 20250508
  Transmission Date: 20250716
  Serious: No
  Sender: SANDOZ
  Company Number: US-SANDOZ-SDZ2025US027903

PATIENT
  Age: 8 Year
  Sex: Female

DRUGS (2)
  1. OMNITROPE [Suspect]
     Active Substance: SOMATROPIN
     Indication: Small for dates baby
     Dosage: 1 MG, QD (OMNITROPE 10 MG / 1.5 ML)
     Route: 058
     Dates: start: 202503
  2. OMNITROPE [Suspect]
     Active Substance: SOMATROPIN
     Indication: Small for dates baby
     Dosage: 1 MG, QD (OMNITROPE 10 MG / 1.5 ML)
     Route: 058
     Dates: start: 202503

REACTIONS (1)
  - Injection site discharge [Unknown]

NARRATIVE: CASE EVENT DATE: 20250401
